FAERS Safety Report 16667597 (Version 1)
Quarter: 2019Q3

REPORT INFORMATION
  Report Type: Spontaneous
  Country: CA (occurrence: CA)
  Receive Date: 20190805
  Receipt Date: 20190805
  Transmission Date: 20191004
  Serious: Yes (Life-Threatening)
  Sender: FDA-Public Use
  Company Number: CA-PFIZER INC-2019329905

PATIENT
  Age: 51 Year
  Sex: Female

DRUGS (3)
  1. NOREPINEPHRINE. [Concomitant]
     Active Substance: NOREPINEPHRINE
     Dosage: UNK
  2. VASOPRESSIN INJECTION [Concomitant]
     Active Substance: VASOPRESSIN
     Dosage: UNK
  3. MEROPENEM. [Suspect]
     Active Substance: MEROPENEM
     Dosage: 500 MG, UNK
     Route: 042

REACTIONS (4)
  - Hypotension [Recovering/Resolving]
  - Anaphylactic reaction [Recovering/Resolving]
  - Shock [Recovering/Resolving]
  - Blister [Recovering/Resolving]
